APPROVED DRUG PRODUCT: LORATADINE
Active Ingredient: LORATADINE
Strength: 10MG
Dosage Form/Route: TABLET;ORAL
Application: A075209 | Product #001
Applicant: PLD ACQUISITIONS LLC
Approved: Jan 21, 2003 | RLD: No | RS: No | Type: OTC